FAERS Safety Report 9342722 (Version 2)
Quarter: 2013Q4

REPORT INFORMATION
  Report Type: Spontaneous
  Country: US (occurrence: US)
  Receive Date: 20130611
  Receipt Date: 20131115
  Transmission Date: 20140711
  Serious: Yes (Hospitalization)
  Sender: FDA-Public Use
  Company Number: US-B.I. PHARMACEUTICALS,INC./RIDGEFIELD-2013-BI-16078BP

PATIENT
  Sex: Male
  Weight: 90.26 kg

DRUGS (9)
  1. PRADAXA [Suspect]
     Indication: ATRIAL FLUTTER
     Route: 048
     Dates: start: 20120208, end: 20120308
  2. AMIODARONE [Concomitant]
     Dosage: 5 MG
  3. COREG [Concomitant]
     Dosage: 25 MG
  4. LASIX [Concomitant]
     Dosage: 40 MG
  5. GLYBURIDE [Concomitant]
  6. INSULIN [Concomitant]
  7. PROTONIX [Concomitant]
  8. CRESTOR [Concomitant]
     Dosage: 20 MG
  9. DIOVAN [Concomitant]
     Dosage: 160 MG

REACTIONS (1)
  - Upper gastrointestinal haemorrhage [Unknown]
